FAERS Safety Report 15015591 (Version 1)
Quarter: 2018Q2

REPORT INFORMATION
  Report Type: Spontaneous
  Country: US (occurrence: US)
  Receive Date: 20180615
  Receipt Date: 20180615
  Transmission Date: 20180711
  Serious: No
  Sender: FDA-Public Use
  Company Number: US-009507513-1806USA001741

PATIENT
  Age: 65 Year
  Sex: Female

DRUGS (1)
  1. JANUVIA [Suspect]
     Active Substance: SITAGLIPTIN PHOSPHATE
     Route: 048

REACTIONS (7)
  - Pain [Unknown]
  - Dizziness [Unknown]
  - Confusional state [Unknown]
  - Vision blurred [Unknown]
  - Feeling jittery [Unknown]
  - Headache [Unknown]
  - Anxiety [Unknown]
